FAERS Safety Report 6761677-9 (Version None)
Quarter: 2010Q2

REPORT INFORMATION
  Report Type: 
  Country: None (occurrence: None)
  Receive Date: 20100609
  Receipt Date: 20100604
  Transmission Date: 20101027
  Serious: No
  Sender: FDA-Public Use
  Company Number: US-BIOGENIDEC-2010BI018509

PATIENT
  Age: 45 Year
  Sex: Female

DRUGS (3)
  1. AVONEX [Suspect]
     Indication: MULTIPLE SCLEROSIS
     Route: 030
     Dates: start: 20100329, end: 20100405
  2. AVONEX [Suspect]
     Route: 030
     Dates: start: 20100405, end: 20100412
  3. AVONEX [Suspect]
     Route: 030
     Dates: start: 20100412

REACTIONS (8)
  - ABDOMINAL PAIN UPPER [None]
  - ABNORMAL SENSATION IN EYE [None]
  - DECREASED APPETITE [None]
  - EMOTIONAL DISORDER [None]
  - FEELING HOT [None]
  - HYPOAESTHESIA FACIAL [None]
  - INFLUENZA LIKE ILLNESS [None]
  - MUSCLE TIGHTNESS [None]
